FAERS Safety Report 24388264 (Version 1)
Quarter: 2024Q4

REPORT INFORMATION
  Report Type: Spontaneous
  Country: GR (occurrence: GR)
  Receive Date: 20241002
  Receipt Date: 20241002
  Transmission Date: 20250114
  Serious: Yes (Life-Threatening, Other)
  Sender: ELI LILLY AND CO
  Company Number: None

PATIENT
  Age: 11 Year
  Sex: Female
  Weight: 26 kg

DRUGS (1)
  1. HUMULIN R [Suspect]
     Active Substance: INSULIN HUMAN
     Indication: Diabetic ketoacidosis
     Dosage: UNK UNK, UNKNOWN
     Route: 042
     Dates: start: 20240921, end: 20240922

REACTIONS (1)
  - Drug ineffective [Not Recovered/Not Resolved]

NARRATIVE: CASE EVENT DATE: 20240921
